FAERS Safety Report 10095584 (Version 2)
Quarter: 2014Q2

REPORT INFORMATION
  Report Type: Spontaneous
  Country: US (occurrence: US)
  Receive Date: 20140422
  Receipt Date: 20140422
  Transmission Date: 20141212
  Serious: Yes (Hospitalization)
  Sender: FDA-Public Use
  Company Number: US-SA-A03200903666

PATIENT
  Age: 74 Year
  Sex: Female
  Weight: 62.58 kg

DRUGS (14)
  1. CLOPIDOGREL BISULFATE [Suspect]
     Indication: PRODUCT USED FOR UNKNOWN INDICATION
     Dosage: UNIT DOSE: 75 MG
     Route: 048
     Dates: start: 2001
  2. COUMADIN ^ENDO^ [Suspect]
     Indication: DEEP VEIN THROMBOSIS
     Route: 065
     Dates: start: 200710
  3. COUMADIN ^ENDO^ [Suspect]
     Indication: DEEP VEIN THROMBOSIS
     Route: 048
  4. COUMADIN ^ENDO^ [Suspect]
     Indication: DEEP VEIN THROMBOSIS
     Route: 048
  5. TOPROL XL [Concomitant]
     Indication: PRODUCT USED FOR UNKNOWN INDICATION
     Dosage: UNIT DOSE: 50 MG
     Route: 048
     Dates: start: 200701
  6. SYNTHROID [Concomitant]
     Indication: PRODUCT USED FOR UNKNOWN INDICATION
     Route: 048
  7. CARDIZEM CD [Concomitant]
     Indication: PRODUCT USED FOR UNKNOWN INDICATION
     Dosage: UNIT DOSE: 180 MG
     Route: 048
  8. LIPITOR /UNK/ [Concomitant]
     Indication: PRODUCT USED FOR UNKNOWN INDICATION
     Dosage: UNIT DOSE: 40 MG
     Route: 048
     Dates: start: 2001, end: 200908
  9. LIPITOR /UNK/ [Concomitant]
     Indication: PRODUCT USED FOR UNKNOWN INDICATION
     Dosage: UNIT DOSE: 40 MG
     Route: 048
     Dates: start: 200908
  10. HYZAAR [Concomitant]
     Indication: PRODUCT USED FOR UNKNOWN INDICATION
     Dosage: DOSE TEXT: 100/25MG DAILY
     Route: 048
     Dates: start: 200701
  11. CITRACAL + D [Concomitant]
     Indication: PRODUCT USED FOR UNKNOWN INDICATION
     Route: 048
  12. CENTRUM SILVER [Concomitant]
     Indication: PRODUCT USED FOR UNKNOWN INDICATION
     Route: 048
  13. ZETIA [Concomitant]
     Indication: PRODUCT USED FOR UNKNOWN INDICATION
     Route: 065
     Dates: start: 2004, end: 200908
  14. TYLENOL [Concomitant]

REACTIONS (7)
  - Deep vein thrombosis [Unknown]
  - Pulmonary embolism [Unknown]
  - Pain in extremity [Unknown]
  - International normalised ratio increased [Unknown]
  - Contusion [Not Recovered/Not Resolved]
  - Back pain [Unknown]
  - Emotional disorder [Unknown]
